FAERS Safety Report 13242786 (Version 3)
Quarter: 2017Q3

REPORT INFORMATION
  Report Type: Spontaneous
  Country: JP (occurrence: JP)
  Receive Date: 20170216
  Receipt Date: 20170911
  Transmission Date: 20171127
  Serious: Yes (Other)
  Sender: FDA-Public Use
  Company Number: JP-MYLANLABS-2017M1009275

PATIENT
  Age: 35 Year
  Sex: Female
  Weight: 55 kg

DRUGS (10)
  1. VICCILLIN-S [Suspect]
     Active Substance: AMPICILLIN\CLOXACILLIN
     Indication: INFECTIVE ANEURYSM
  2. VANCOMYCIN [Suspect]
     Active Substance: VANCOMYCIN
     Indication: STAPHYLOCOCCAL INFECTION
  3. VICCILLIN-S [Suspect]
     Active Substance: AMPICILLIN\CLOXACILLIN
     Indication: ENDOCARDITIS
     Dosage: 4 G, 6XD
     Route: 042
     Dates: start: 201601
  4. CEFTRIAXONE. [Suspect]
     Active Substance: CEFTRIAXONE
     Indication: ENDOCARDITIS
     Dosage: 2G, QD
     Route: 042
     Dates: start: 201601
  5. GENTAMICIN. [Suspect]
     Active Substance: GENTAMICIN
     Indication: ENDOCARDITIS
     Route: 065
  6. CEFTRIAXONE. [Suspect]
     Active Substance: CEFTRIAXONE
     Indication: INFECTIVE ANEURYSM
  7. IOMERON [Suspect]
     Active Substance: IOMEPROL
     Indication: SCAN WITH CONTRAST
     Route: 065
  8. VANCOMYCIN [Suspect]
     Active Substance: VANCOMYCIN
     Indication: ENDOCARDITIS
     Dosage: 1 G, BID
     Route: 042
     Dates: start: 20160128, end: 20160128
  9. VANCOMYCIN [Suspect]
     Active Substance: VANCOMYCIN
     Indication: INFECTIVE ANEURYSM
  10. GENTAMICIN. [Suspect]
     Active Substance: GENTAMICIN
     Indication: INFECTIVE ANEURYSM

REACTIONS (1)
  - Renal disorder [Recovered/Resolved]

NARRATIVE: CASE EVENT DATE: 20160130
